FAERS Safety Report 8578949-8 (Version None)
Quarter: 2012Q3

REPORT INFORMATION
  Report Type: 
  Country: None (occurrence: None)
  Receive Date: 20120808
  Receipt Date: 20120731
  Transmission Date: 20120928
  Serious: Yes (Hospitalization)
  Sender: FDA-Public Use
  Company Number: US-VERTEX PHARMACEUTICALS INC.-AE-2012-010841

PATIENT
  Sex: Male
  Weight: 83.99 kg

DRUGS (9)
  1. INCIVEK [Suspect]
     Indication: HEPATITIS C
     Route: 048
     Dates: start: 20120614
  2. RIBAVIRIN [Concomitant]
     Indication: HEPATITIS C
     Route: 048
     Dates: start: 20120614, end: 20120719
  3. MORPHINE SULFATE [Concomitant]
     Indication: PAIN
     Route: 048
  4. LYRICA [Concomitant]
     Indication: PAIN
     Route: 048
  5. HYDROCODONE BITARTRATE AND ACETAMINOPHEN [Concomitant]
     Indication: PAIN
     Route: 048
     Dates: start: 20120619
  6. BACLOFEN [Concomitant]
     Indication: PAIN
     Route: 048
  7. PEG-INTRON [Concomitant]
     Indication: HEPATITIS C
     Route: 058
     Dates: start: 20120614
  8. CYMBALTA [Concomitant]
     Indication: PAIN
     Route: 048
  9. RIBAVIRIN [Concomitant]
     Route: 048
     Dates: start: 20120619

REACTIONS (6)
  - DYSGEUSIA [None]
  - ANORECTAL DISCOMFORT [None]
  - FATIGUE [None]
  - THINKING ABNORMAL [None]
  - WEIGHT DECREASED [None]
  - LETHARGY [None]
